FAERS Safety Report 5150202-4 (Version None)
Quarter: 2006Q4

REPORT INFORMATION
  Report Type: 
  Country: None (occurrence: None)
  Receive Date: 20061109
  Receipt Date: 20061109
  Transmission Date: 20070319
  Serious: Yes (Other)
  Sender: FDA-Public Use
  Company Number: None

PATIENT
  Sex: Female

DRUGS (1)
  1. TERBUTALINE SULFATE [Suspect]
     Dosage: 0.25 MG ONCE SC
     Route: 058
     Dates: start: 20061029

REACTIONS (1)
  - RASH [None]
